FAERS Safety Report 25081272 (Version 5)
Quarter: 2025Q3

REPORT INFORMATION
  Report Type: Spontaneous
  Country: US (occurrence: US)
  Receive Date: 20250316
  Receipt Date: 20250918
  Transmission Date: 20251021
  Serious: Yes (Other)
  Sender: SANOFI AVENTIS
  Company Number: US-SA-2025SA074293

PATIENT
  Age: 68 Year
  Sex: Female
  Weight: 103.59 kg

DRUGS (2)
  1. KEVZARA [Suspect]
     Active Substance: SARILUMAB
     Indication: Polymyalgia rheumatica
     Dosage: 200 MG, QOW
     Route: 058
     Dates: start: 20250129, end: 20250421
  2. PREDNISONE [Suspect]
     Active Substance: PREDNISONE
     Dates: end: 202509

REACTIONS (12)
  - Polymyalgia rheumatica [Unknown]
  - Compression fracture [Not Recovered/Not Resolved]
  - Fibromyalgia [Unknown]
  - Osteoporosis [Unknown]
  - Injection site bruising [Unknown]
  - Tinnitus [Unknown]
  - Eye swelling [Unknown]
  - Peripheral swelling [Unknown]
  - Scratch [Not Recovered/Not Resolved]
  - Contusion [Not Recovered/Not Resolved]
  - Impaired healing [Not Recovered/Not Resolved]
  - Injection site erythema [Unknown]

NARRATIVE: CASE EVENT DATE: 20050101
